FAERS Safety Report 8161479-5 (Version None)
Quarter: 2012Q1

REPORT INFORMATION
  Report Type: 
  Country: None (occurrence: None)
  Receive Date: 20120103
  Receipt Date: 20111014
  Transmission Date: 20120608
  Serious: No
  Sender: FDA-Public Use
  Company Number: AE-2011-001964

PATIENT
  Age: 44 Year
  Sex: Male
  Weight: 101.6057 kg

DRUGS (6)
  1. INCIVEK [Suspect]
     Dosage: 2250 MG (750 MG, 1 IN 8 HR), ORAL
     Route: 048
     Dates: start: 20110720
  2. METHADONE HCL [Concomitant]
  3. PEGASYS [Concomitant]
  4. LISINOPRIL [Concomitant]
  5. XANAX [Concomitant]
  6. RIBAVIRIN [Concomitant]

REACTIONS (1)
  - DRUG ADMINISTRATION ERROR [None]
